FAERS Safety Report 5700355-1 (Version None)
Quarter: 2008Q2

REPORT INFORMATION
  Report Type: 
  Country: None (occurrence: None)
  Receive Date: 20080407
  Receipt Date: 20080328
  Transmission Date: 20081010
  Serious: Yes (Death)
  Sender: FDA-Public Use
  Company Number: 2008US000620

PATIENT
  Age: 64 Year
  Sex: Male
  Weight: 70 kg

DRUGS (5)
  1. PROGRAF [Suspect]
     Indication: HEART TRANSPLANT
     Dosage: 3 MG, UID/QD
     Dates: end: 20080128
  2. CELLCEPT [Concomitant]
  3. PREDNISOLONE ACETATE [Concomitant]
  4. ACETYLSALICYLIC ACID SRT [Concomitant]
  5. PLAVIX [Concomitant]

REACTIONS (1)
  - INFECTION [None]
